FAERS Safety Report 4847269-7 (Version None)
Quarter: 2005Q4

REPORT INFORMATION
  Report Type: 
  Country: None (occurrence: None)
  Receive Date: 20051205
  Receipt Date: 20051205
  Transmission Date: 20060501
  Serious: Yes (Hospitalization)
  Sender: FDA-Public Use
  Company Number: None

PATIENT
  Sex: Female
  Weight: 48 kg

DRUGS (1)
  1. LISINOPRIL [Suspect]
     Dosage: 10MG    PO  (THERAPY DATES: PRIOR TO ADMISSION -    )
     Route: 048

REACTIONS (4)
  - ANGIONEUROTIC OEDEMA [None]
  - ERYTHEMA [None]
  - PRURITUS [None]
  - SWOLLEN TONGUE [None]
